FAERS Safety Report 20555479 (Version 1)
Quarter: 2022Q1

REPORT INFORMATION
  Report Type: Spontaneous
  Country: US (occurrence: US)
  Receive Date: 20220304
  Receipt Date: 20220304
  Transmission Date: 20220423
  Serious: No
  Sender: FDA-Public Use
  Company Number: US-009507513-2203USA001630

PATIENT
  Sex: Male
  Weight: 113.38 kg

DRUGS (20)
  1. KEYTRUDA [Suspect]
     Active Substance: PEMBROLIZUMAB
     Dosage: UNK
  2. LENVATINIB MESYLATE [Suspect]
     Active Substance: LENVATINIB MESYLATE
     Indication: Renal cancer
     Dosage: 14 MILLIGRAM, QD
     Route: 048
     Dates: start: 202001
  3. TRIAMCINOLONE ACETONIDE [Concomitant]
     Active Substance: TRIAMCINOLONE ACETONIDE
  4. ELIQUIS [Concomitant]
     Active Substance: APIXABAN
  5. OMEPRAZOLE [Concomitant]
     Active Substance: OMEPRAZOLE
  6. EVEROLIMUS [Concomitant]
     Active Substance: EVEROLIMUS
  7. VOLTAREN ARTHRITIS PAIN [Concomitant]
     Active Substance: DICLOFENAC SODIUM
  8. SYNTHROID [Concomitant]
     Active Substance: LEVOTHYROXINE SODIUM
  9. NIFEDIPINE [Concomitant]
     Active Substance: NIFEDIPINE
  10. ACETAMINOPHEN\HYDROCODONE [Concomitant]
     Active Substance: ACETAMINOPHEN\HYDROCODONE
  11. NIZORAL A-D [Concomitant]
     Active Substance: KETOCONAZOLE
  12. HYDROCORTISONE [Concomitant]
     Active Substance: HYDROCORTISONE
  13. LOSARTAN POTASSIUM [Concomitant]
     Active Substance: LOSARTAN POTASSIUM
  14. VITAMIN D3 [Concomitant]
     Active Substance: CHOLECALCIFEROL
  15. TEMOVATE [Concomitant]
     Active Substance: CLOBETASOL PROPIONATE
  16. FOLIC ACID [Concomitant]
     Active Substance: FOLIC ACID
  17. LASIX [Concomitant]
     Active Substance: FUROSEMIDE
  18. MAGNESIUM [Concomitant]
     Active Substance: MAGNESIUM
  19. LOPROX [Concomitant]
     Active Substance: CICLOPIROX\CICLOPIROX OLAMINE
  20. HYDROCORTISONE [Concomitant]
     Active Substance: HYDROCORTISONE

REACTIONS (1)
  - Cardiac disorder [Unknown]
